FAERS Safety Report 11448449 (Version 1)
Quarter: 2015Q3

REPORT INFORMATION
  Report Type: Spontaneous
  Country: NO (occurrence: NO)
  Receive Date: 20150902
  Receipt Date: 20150902
  Transmission Date: 20151125
  Serious: Yes (Hospitalization, Other)
  Sender: FDA-Public Use
  Company Number: ES-ASTRAZENECA-2015SE49488

PATIENT
  Age: 70 Year
  Sex: Female

DRUGS (1)
  1. EKLIRA GENUAIR [Suspect]
     Active Substance: ACLIDINIUM BROMIDE
     Indication: CHRONIC OBSTRUCTIVE PULMONARY DISEASE
     Route: 055

REACTIONS (2)
  - Generalised tonic-clonic seizure [Recovered/Resolved]
  - Parosmia [Unknown]

NARRATIVE: CASE EVENT DATE: 20141214
